FAERS Safety Report 5293062-3 (Version None)
Quarter: 2007Q2

REPORT INFORMATION
  Report Type: 
  Country: None (occurrence: None)
  Receive Date: 20070411
  Receipt Date: 20070330
  Transmission Date: 20071010
  Serious: Yes (Other)
  Sender: FDA-Public Use
  Company Number: PHBS2007BR06027

PATIENT
  Age: 21 Year
  Sex: Male
  Weight: 109 kg

DRUGS (4)
  1. DRAMIN [Suspect]
     Route: 048
  2. DRAMIN [Suspect]
     Dosage: 8 TABLETS, ONCE/SINGLE
     Route: 048
     Dates: start: 20070329, end: 20070329
  3. TRILEPTAL [Suspect]
     Dosage: 150 MG, QD
     Route: 048
     Dates: start: 20070328
  4. TRILEPTAL [Suspect]
     Dosage: 19.5 TABLETS, ONCE/SINGLE
     Route: 048
     Dates: start: 20070329, end: 20070329

REACTIONS (4)
  - DIZZINESS [None]
  - INTENTIONAL OVERDOSE [None]
  - SOMNOLENCE [None]
  - SUICIDE ATTEMPT [None]
